FAERS Safety Report 25490399 (Version 4)
Quarter: 2025Q4

REPORT INFORMATION
  Report Type: Spontaneous
  Country: US (occurrence: US)
  Receive Date: 20250628
  Receipt Date: 20251107
  Transmission Date: 20260118
  Serious: No
  Sender: SANOFI AVENTIS
  Company Number: US-SA-2025SA181014

PATIENT
  Age: 32 Year
  Sex: Male
  Weight: 68.18 kg

DRUGS (4)
  1. DUPIXENT [Suspect]
     Active Substance: DUPILUMAB
     Indication: Dermatitis atopic
     Dosage: 300 MG, QOW
     Route: 058
  2. ZYRTEC [Concomitant]
     Active Substance: CETIRIZINE HYDROCHLORIDE
     Dosage: UNK
  3. CLARITIN [Concomitant]
     Active Substance: LORATADINE
     Dosage: UNK
  4. XYZAL [Concomitant]
     Active Substance: LEVOCETIRIZINE DIHYDROCHLORIDE
     Dosage: UNK

REACTIONS (11)
  - Skin swelling [Not Recovered/Not Resolved]
  - Dizziness [Unknown]
  - Skin exfoliation [Unknown]
  - Urticaria [Unknown]
  - Erythema [Unknown]
  - Injection site pain [Not Recovered/Not Resolved]
  - Rash [Unknown]
  - Rash erythematous [Unknown]
  - Product dose omission issue [Unknown]
  - Rebound effect [Unknown]
  - Headache [Unknown]

NARRATIVE: CASE EVENT DATE: 20250101
